FAERS Safety Report 15982517 (Version 1)
Quarter: 2019Q1

REPORT INFORMATION
  Report Type: Spontaneous
  Country: JP (occurrence: JP)
  Receive Date: 20190219
  Receipt Date: 20190219
  Transmission Date: 20190418
  Serious: Yes (Other)
  Sender: FDA-Public Use
  Company Number: JP-PFIZER INC-2019067154

PATIENT

DRUGS (1)
  1. ANAEMETRO [Suspect]
     Active Substance: METRONIDAZOLE
     Dosage: UNK

REACTIONS (1)
  - Lung infection [Unknown]
